FAERS Safety Report 8298596-5 (Version None)
Quarter: 2012Q2

REPORT INFORMATION
  Report Type: 
  Country: None (occurrence: None)
  Receive Date: 20120419
  Receipt Date: 20120410
  Transmission Date: 20120825
  Serious: Yes (Other)
  Sender: FDA-Public Use
  Company Number: GB-ASTRAZENECA-2012SE14023

PATIENT
  Sex: Female
  Weight: 66 kg

DRUGS (13)
  1. PREDNISOLONE [Concomitant]
     Dosage: FOUR TIMES DAILY
  2. EFCORTESOL [Concomitant]
     Dosage: 100 MG/ML, 100 MG AS REQUIRED
  3. CELECOXIB [Concomitant]
  4. RHINOCORT [Suspect]
     Route: 045
  5. FLUDROCORTISONE ACETATE [Concomitant]
  6. SULFASALAZINE [Concomitant]
  7. PREDNISOLONE [Concomitant]
  8. PREDNISOLONE [Concomitant]
  9. HYDROCORTISONE [Concomitant]
     Dosage: ONE TABLET IN THE MORNING, HALF A TABLET LUNCHTIME, HALF A TABLET AT TEA TIME
  10. RHINOCORT [Suspect]
     Route: 061
  11. BUDESONIDE AQUEOUS [Concomitant]
     Dosage: 64 MICROGRAM/DOSE, 2 SQUIRTS IN EACH NOSTRIL DAILY
  12. LEVOTHYROXINE SODIUM [Concomitant]
  13. LEVOTHYROXINE SODIUM [Concomitant]

REACTIONS (1)
  - APPLICATION SITE RASH [None]
